FAERS Safety Report 9234990 (Version 1)
Quarter: 2013Q2

REPORT INFORMATION
  Report Type: Spontaneous
  Country: US (occurrence: US)
  Receive Date: 20130416
  Receipt Date: 20130416
  Transmission Date: 20140414
  Serious: Yes (Other)
  Sender: FDA-Public Use
  Company Number: US-UCBSA-083110

PATIENT
  Age: 64 Year
  Sex: Female

DRUGS (14)
  1. CIMZIA [Suspect]
     Indication: CROHN^S DISEASE
  2. HUMIRA [Suspect]
     Indication: CROHN^S DISEASE
  3. SYNTHROID [Concomitant]
     Dosage: DOSE: 125 MICRO GRAM
  4. LOMOTIL [Concomitant]
     Indication: DIARRHOEA
     Dosage: DAILY DOSE: AS REQUIRED
  5. WELCHOL [Concomitant]
     Indication: DIARRHOEA
     Dosage: DOSE: AS REQUIRED
  6. AMLODIPINE [Concomitant]
     Indication: HYPERTENSION
  7. LOSARTAN [Concomitant]
     Indication: HYPERTENSION
  8. CITALOPRAM [Concomitant]
     Indication: MENTAL DISORDER
  9. ALENDRONATE [Concomitant]
     Indication: OSTEOPOROSIS
  10. CALCIUM [Concomitant]
     Indication: SUPPLEMENTATION THERAPY
     Dosage: DOSE: DAILY
  11. IRON [Concomitant]
     Indication: SUPPLEMENTATION THERAPY
     Dosage: DOSE: DAILY
  12. MULTIVITAMIN [Concomitant]
     Indication: SUPPLEMENTATION THERAPY
     Dosage: DOSE: DAILY
  13. VITAMIN D [Concomitant]
     Indication: SUPPLEMENTATION THERAPY
     Dosage: DOSE: DAILY
  14. BIOTIN [Concomitant]
     Indication: SUPPLEMENTATION THERAPY
     Dosage: DOSE: DAILY

REACTIONS (3)
  - Crohn^s disease [Unknown]
  - Infection [Unknown]
  - Drug ineffective [Unknown]
